FAERS Safety Report 7498703-8 (Version None)
Quarter: 2011Q2

REPORT INFORMATION
  Report Type: 
  Country: None (occurrence: None)
  Receive Date: 20110516
  Receipt Date: 20110428
  Transmission Date: 20111010
  Serious: Yes (Hospitalization)
  Sender: FDA-Public Use
  Company Number: 11AE001

PATIENT
  Age: 52 Year
  Sex: Male
  Weight: 188 kg

DRUGS (10)
  1. TAMSULOSIN HCL [Concomitant]
  2. CRESTOR [Concomitant]
  3. XANAX [Concomitant]
  4. OMEPRAZOLE [Concomitant]
  5. METOPROLOL TARTRATE [Concomitant]
  6. EQUATE ACETAMINOPHEN 325MG, GUAIFENESIN 200MG, PE 5MG [Suspect]
     Dosage: 2 PER DAY(AM+PM), ORALLY
     Route: 048
  7. NITROGLYCERIN [Concomitant]
  8. FINAFTERIDE [Concomitant]
  9. CITALOMPRAM [Concomitant]
  10. BUPROPION HYDROCHLORIDE [Concomitant]

REACTIONS (2)
  - BLOOD PRESSURE ABNORMAL [None]
  - DRUG INTERACTION [None]
